FAERS Safety Report 9897474 (Version 3)
Quarter: 2014Q2

REPORT INFORMATION
  Report Type: Spontaneous
  Country: US (occurrence: US)
  Receive Date: 20140214
  Receipt Date: 20140603
  Transmission Date: 20141212
  Serious: No
  Sender: FDA-Public Use
  Company Number: US-BAYER-2014-022736

PATIENT
  Age: 22 Year
  Sex: Female
  Weight: 80 kg

DRUGS (11)
  1. MIRENA [Suspect]
     Indication: CONTRACEPTION
     Dosage: 20 MCG/24HR, CONT
     Route: 015
     Dates: start: 20140201, end: 20140201
  2. MIRENA [Suspect]
     Indication: CONTRACEPTION
     Dosage: 20 MCG/24HR, CONT
     Route: 015
     Dates: start: 20140206, end: 20140206
  3. CELEXA [Concomitant]
     Dosage: 1 TAB PO Q DAY
     Route: 048
     Dates: start: 20111005
  4. FEMCON FE [Concomitant]
     Dosage: 0.4 MG- 35 MCG(21) + 75 MG (7) 1 TAB PO Q DAY
     Route: 048
     Dates: start: 20081210
  5. FLAGYL [Concomitant]
     Dosage: 1 PO BID* 1 WEEK
     Route: 048
     Dates: start: 20130108
  6. MACROBID [Concomitant]
     Dosage: 1 PO
     Route: 048
     Dates: start: 20100118
  7. NITROFURANTOIN [Concomitant]
     Dosage: 100 MG, UNK
     Route: 048
     Dates: start: 20080422
  8. ORTHO EVRA [Concomitant]
     Dosage: 150-20 MCG/24 HR, 1X/QWK
     Route: 062
     Dates: start: 20130108
  9. PHENERGAN [Concomitant]
     Dosage: Q 4-6 HRS
     Route: 048
     Dates: start: 20091007
  10. PRENATAL [FOLIC ACID,IRON] [Concomitant]
     Dosage: 1 TAB PO Q DAY
     Route: 048
     Dates: start: 20080329
  11. REGLAN [Concomitant]
     Dosage: Q AC AND HS
     Route: 048
     Dates: start: 20091118

REACTIONS (3)
  - Uterine spasm [Recovered/Resolved]
  - Device expulsion [None]
  - Device deployment issue [Recovered/Resolved]
